FAERS Safety Report 5304273-2 (Version None)
Quarter: 2007Q2

REPORT INFORMATION
  Report Type: 
  Country: None (occurrence: None)
  Receive Date: 20070423
  Receipt Date: 20070409
  Transmission Date: 20071010
  Serious: Yes (Other)
  Sender: FDA-Public Use
  Company Number: PHBS2007BR06411

PATIENT
  Age: 63 Year
  Sex: Female
  Weight: 62 kg

DRUGS (8)
  1. TEGRETOL [Suspect]
     Indication: EPILEPSY
     Route: 048
  2. TRILEPTAL [Suspect]
     Indication: EPILEPSY
     Dosage: 600 MG, QHS
     Route: 048
  3. TRILEPTAL [Suspect]
     Dosage: 600 MG, BID
     Route: 048
  4. OSSOPAN [Concomitant]
     Dosage: 800 MG, QD
     Route: 048
  5. VITAMIN E [Concomitant]
     Dosage: 1 TABLET, QD
     Route: 048
  6. CHONDROITIN [Concomitant]
     Dosage: 1 DF, QD
     Route: 048
  7. ISOFLAVONE [Concomitant]
     Dosage: 1 DF, QD
     Route: 048
  8. MYSOLINE [Concomitant]

REACTIONS (6)
  - CEREBRAL HAEMANGIOMA [None]
  - DIZZINESS [None]
  - HAEMANGIOMA REMOVAL [None]
  - MONOPLEGIA [None]
  - NAUSEA [None]
  - VOMITING [None]
